FAERS Safety Report 17675462 (Version 1)
Quarter: 2020Q2

REPORT INFORMATION
  Report Type: Spontaneous
  Country: US (occurrence: US)
  Receive Date: 20200415
  Receipt Date: 20200415
  Transmission Date: 20200714
  Serious: Yes (Life-Threatening, Hospitalization)
  Sender: FDA-Public Use
  Company Number: None

PATIENT
  Age: 89 Year
  Sex: Male

DRUGS (1)
  1. PROCHLORPERAZINE [PROCHLORPERAZINE EDISYLATE] [Suspect]
     Active Substance: PROCHLORPERAZINE EDISYLATE
     Indication: NAUSEA
     Route: 042
     Dates: start: 20190108, end: 20190108

REACTIONS (5)
  - Mental status changes [None]
  - Dyspnoea [None]
  - Cardio-respiratory arrest [None]
  - Unresponsive to stimuli [None]
  - Tachypnoea [None]

NARRATIVE: CASE EVENT DATE: 20190108
